FAERS Safety Report 23518580 (Version 1)
Quarter: 2024Q1

REPORT INFORMATION
  Report Type: Spontaneous
  Country: JP (occurrence: JP)
  Receive Date: 20240213
  Receipt Date: 20240213
  Transmission Date: 20240410
  Serious: Yes (Other)
  Sender: FDA-Public Use
  Company Number: JP-HEXAL-SDZ2023JP037699AA

PATIENT
  Age: 60 Year
  Sex: Male

DRUGS (1)
  1. LAMPRENE [Suspect]
     Active Substance: CLOFAZIMINE
     Indication: Mycobacterium abscessus infection
     Dosage: UNK (50MG X 2CP, IMMEDIATELY AFTER BREAKFAST)
     Route: 048

REACTIONS (4)
  - COVID-19 pneumonia [Unknown]
  - Cardiomyopathy [Unknown]
  - Acute kidney injury [Unknown]
  - Off label use [Unknown]
